FAERS Safety Report 10146396 (Version 2)
Quarter: 2014Q2

REPORT INFORMATION
  Report Type: Spontaneous
  Country: US (occurrence: US)
  Receive Date: 20140501
  Receipt Date: 20140527
  Transmission Date: 20141212
  Serious: Yes (Other)
  Sender: FDA-Public Use
  Company Number: US-PFIZER INC-2014117078

PATIENT
  Age: 77 Year
  Sex: Female
  Weight: 81.63 kg

DRUGS (4)
  1. LYRICA [Suspect]
     Indication: FIBROMYALGIA
     Dosage: 150 MG, 2X/DAY
     Route: 048
     Dates: start: 20131004
  2. TOVIAZ [Suspect]
     Indication: BLADDER DISORDER
     Dosage: 8 MG, 1X/DAY
     Route: 048
     Dates: start: 20131004
  3. CYMBALTA [Concomitant]
     Indication: FIBROMYALGIA
     Dosage: 30 MG, 2X/DAY
     Route: 048
  4. CYMBALTA [Concomitant]
     Indication: DEPRESSION

REACTIONS (2)
  - Arthropathy [Unknown]
  - Arthropathy [Unknown]
